FAERS Safety Report 8407800-1 (Version None)
Quarter: 2012Q2

REPORT INFORMATION
  Report Type: 
  Country: None (occurrence: None)
  Receive Date: 20120604
  Receipt Date: 20120530
  Transmission Date: 20120825
  Serious: Yes (Other)
  Sender: FDA-Public Use
  Company Number: DK-GLAXOSMITHKLINE-B0805278A

PATIENT
  Age: 57 Year
  Sex: Male
  Weight: 78 kg

DRUGS (1)
  1. CLOBETASOL PROPIONATE [Suspect]
     Indication: ECZEMA
     Route: 065
     Dates: start: 20080101, end: 20110101

REACTIONS (2)
  - CHORIORETINOPATHY [None]
  - OVERDOSE [None]
